FAERS Safety Report 5089619-5 (Version None)
Quarter: 2006Q3

REPORT INFORMATION
  Report Type: 
  Country: None (occurrence: None)
  Receive Date: 20060822
  Receipt Date: 20060810
  Transmission Date: 20061208
  Serious: Yes (Hospitalization, Other)
  Sender: FDA-Public Use
  Company Number: 2006058963

PATIENT
  Age: 52 Year
  Sex: Male

DRUGS (3)
  1. CELEBREX [Suspect]
     Indication: ARTHRALGIA
     Dosage: 200 MG (200 MG, 1 N 1 D)
     Dates: start: 20030701
  2. ACETYLSALICYLIC ACID (ACETYLSALICYCLIC ACID) [Concomitant]
  3. GLUCOSAMINE (GLUCOSAMINE) [Concomitant]

REACTIONS (1)
  - MYOCARDIAL INFARCTION [None]
